FAERS Safety Report 6572077-9 (Version None)
Quarter: 2010Q1

REPORT INFORMATION
  Report Type: 
  Country: None (occurrence: None)
  Receive Date: 20100205
  Receipt Date: 20100125
  Transmission Date: 20100710
  Serious: Yes (Hospitalization)
  Sender: FDA-Public Use
  Company Number: FR-CELGENEUS-056-C5013-10011949

PATIENT
  Sex: Male
  Weight: 70.5 kg

DRUGS (8)
  1. THALIDOMIDE [Suspect]
     Indication: MULTIPLE MYELOMA
     Route: 048
     Dates: start: 20100122
  2. THALIDOMIDE [Suspect]
     Route: 048
     Dates: start: 20090326
  3. PREDNISONE [Suspect]
     Indication: MULTIPLE MYELOMA
     Route: 065
     Dates: start: 20100122
  4. PREDNISONE [Suspect]
     Route: 065
     Dates: start: 20090326
  5. MELPHALAN HYDROCHLORIDE [Suspect]
     Indication: MULTIPLE MYELOMA
     Route: 065
     Dates: start: 20090122
  6. MELPHALAN HYDROCHLORIDE [Suspect]
     Route: 065
     Dates: start: 20090326
  7. FORLAX [Concomitant]
     Indication: CONSTIPATION
     Route: 065
  8. ANTIDEPRESSANTS [Concomitant]
     Indication: DEPRESSION
     Route: 065

REACTIONS (1)
  - RETRO-ORBITAL NEOPLASM [None]
